FAERS Safety Report 8015550-9 (Version None)
Quarter: 2011Q4

REPORT INFORMATION
  Report Type: 
  Country: None (occurrence: None)
  Receive Date: 20111228
  Receipt Date: 20111228
  Transmission Date: 20120403
  Serious: Yes (Hospitalization)
  Sender: FDA-Public Use
  Company Number: None

PATIENT
  Age: 44 Year
  Sex: Female
  Weight: 123.5 kg

DRUGS (2)
  1. MORPHINE [Suspect]
     Indication: PAIN
     Dosage: 2 MG ONCE IV
     Route: 042
     Dates: start: 20111101, end: 20111101
  2. HYDROMORPHONE HCL [Suspect]
     Indication: PAIN
     Dosage: 4 MG ONCE IV
     Route: 042

REACTIONS (11)
  - ANAPHYLACTIC REACTION [None]
  - NAUSEA [None]
  - FATIGUE [None]
  - PALATAL OEDEMA [None]
  - PRURITUS [None]
  - DYSPHONIA [None]
  - URTICARIA [None]
  - ANGIOEDEMA [None]
  - RASH [None]
  - DRY MOUTH [None]
  - TONGUE DISORDER [None]
